FAERS Safety Report 22054627 (Version 1)
Quarter: 2023Q1

REPORT INFORMATION
  Report Type: Spontaneous
  Country: US (occurrence: US)
  Receive Date: 20230302
  Receipt Date: 20230302
  Transmission Date: 20230418
  Serious: No
  Sender: FDA-Public Use
  Company Number: US-SANOFI-01508728

PATIENT
  Age: 6 Year
  Sex: Male

DRUGS (2)
  1. FABRAZYME [Suspect]
     Active Substance: AGALSIDASE BETA
     Indication: Fabry^s disease
     Dosage: 30 MG, QOW
     Dates: start: 20180511, end: 20230127
  2. FABRAZYME [Suspect]
     Active Substance: AGALSIDASE BETA
     Dosage: 30 MG, QOW
     Dates: start: 20230224

REACTIONS (1)
  - Pharyngitis streptococcal [Unknown]
